FAERS Safety Report 4585249-X (Version None)
Quarter: 2005Q1

REPORT INFORMATION
  Report Type: 
  Country: None (occurrence: None)
  Receive Date: 20050217
  Receipt Date: 20050128
  Transmission Date: 20050727
  Serious: No
  Sender: FDA-Public Use
  Company Number: US-GLAXOSMITHKLINE-A0542842A

PATIENT
  Age: 62 Year
  Sex: Female

DRUGS (2)
  1. WELLBUTRIN XL [Suspect]
     Indication: POST-TRAUMATIC STRESS DISORDER
     Dosage: 150MG PER DAY
     Route: 048
     Dates: start: 20040901
  2. EFFEXOR [Concomitant]

REACTIONS (3)
  - MEMORY IMPAIRMENT [None]
  - MYALGIA [None]
  - PSYCHOMOTOR HYPERACTIVITY [None]
